FAERS Safety Report 5126587-1 (Version None)
Quarter: 2006Q4

REPORT INFORMATION
  Report Type: 
  Country: None (occurrence: None)
  Receive Date: 20061012
  Receipt Date: 20061012
  Transmission Date: 20070319
  Serious: Yes (Life-Threatening, Hospitalization)
  Sender: FDA-Public Use
  Company Number: None

PATIENT
  Age: 56 Year
  Sex: Male

DRUGS (2)
  1. MIDAZOLAM HCL [Suspect]
     Indication: SEDATION
     Dosage: 1 MG X3 IV BOLUS
     Route: 040
     Dates: start: 20060802, end: 20060802
  2. MIDAZOLAM HCL [Suspect]
     Indication: SEDATION
     Dosage: 2 MG X1 IV BOLUS
     Route: 040
     Dates: start: 20060802, end: 20060802

REACTIONS (2)
  - APNOEA [None]
  - RESPIRATORY DEPRESSION [None]
